FAERS Safety Report 16723432 (Version 2)
Quarter: 2020Q2

REPORT INFORMATION
  Report Type: Spontaneous
  Country: CA (occurrence: CA)
  Receive Date: 20190821
  Receipt Date: 20200603
  Transmission Date: 20200713
  Serious: Yes (Other)
  Sender: FDA-Public Use
  Company Number: CA-AUROBINDO-AUR-APL-2019-053944

PATIENT
  Age: 25 Year
  Sex: Male
  Weight: 52 kg

DRUGS (3)
  1. AZITHROMYCIN ANHYDROUS. [Suspect]
     Active Substance: AZITHROMYCIN ANHYDROUS
     Indication: CHLAMYDIAL INFECTION
     Dosage: UNK
     Route: 065
  2. REMICADE [Suspect]
     Active Substance: INFLIXIMAB
     Indication: CROHN^S DISEASE
     Dosage: 5 MILLIGRAM/KILOGRAM
     Route: 042
  3. CEFIXIME. [Suspect]
     Active Substance: CEFIXIME
     Indication: CHLAMYDIAL INFECTION
     Dosage: UNK
     Route: 065

REACTIONS (2)
  - Chlamydial infection [Recovered/Resolved]
  - Headache [Recovered/Resolved]
